FAERS Safety Report 24924542 (Version 1)
Quarter: 2025Q1

REPORT INFORMATION
  Report Type: Report from Study
  Country: US (occurrence: US)
  Receive Date: 20250204
  Receipt Date: 20250204
  Transmission Date: 20250408
  Serious: No
  Sender: EXELIXIS
  Company Number: US-EXELIXIS-CABO-24075005

PATIENT
  Age: 71 Year
  Sex: Female

DRUGS (10)
  1. COMETRIQ [Suspect]
     Active Substance: CABOZANTINIB S-MALATE
     Indication: Thyroid cancer
     Dosage: 60 MG, QD
  2. COMETRIQ [Suspect]
     Active Substance: CABOZANTINIB S-MALATE
     Dosage: 60 MG, QD
  3. COMETRIQ [Suspect]
     Active Substance: CABOZANTINIB S-MALATE
  4. LEVOTHYROXINE [Concomitant]
     Active Substance: LEVOTHYROXINE
  5. LAMISIL [Concomitant]
     Active Substance: TERBINAFINE HYDROCHLORIDE
  6. NEURONTIN [Concomitant]
     Active Substance: GABAPENTIN
  7. LIPITOR [Concomitant]
     Active Substance: ATORVASTATIN CALCIUM
  8. PEPCID [Concomitant]
     Active Substance: FAMOTIDINE
  9. PRINIVIL [Concomitant]
     Active Substance: LISINOPRIL
  10. SEMGLEE [Concomitant]

REACTIONS (6)
  - Protein urine [Unknown]
  - Diarrhoea [Unknown]
  - Vomiting [Unknown]
  - Ageusia [Unknown]
  - Blood glucose decreased [Unknown]
  - Peripheral swelling [Unknown]

NARRATIVE: CASE EVENT DATE: 20240410
